FAERS Safety Report 6429640-5 (Version None)
Quarter: 2009Q4

REPORT INFORMATION
  Report Type: 
  Country: None (occurrence: None)
  Receive Date: 20091106
  Receipt Date: 20091028
  Transmission Date: 20100525
  Serious: Yes (Death)
  Sender: FDA-Public Use
  Company Number: JP-ABBOTT-09P-087-0600634-00

PATIENT
  Age: 70 Year
  Sex: Male

DRUGS (6)
  1. LEUPLIN SR FOR INJECTION 11.25 MG [Suspect]
     Indication: PROSTATE CANCER STAGE IV
     Route: 058
     Dates: start: 20060104, end: 20061129
  2. CASODEX [Concomitant]
     Indication: PROSTATE CANCER STAGE IV
     Route: 048
     Dates: start: 20050706, end: 20060426
  3. ESTRAMUSTINE PHOSPHATE SODIUM [Concomitant]
     Indication: PROSTATE CANCER STAGE IV
     Route: 048
     Dates: start: 20060510, end: 20061003
  4. ESTRAMUSTINE PHOSPHATE SODIUM [Concomitant]
     Route: 048
     Dates: end: 20061213
  5. LOXONIN [Concomitant]
     Indication: METASTATIC PAIN
     Route: 048
     Dates: start: 20060301, end: 20061213
  6. TAGAMET [Concomitant]
     Indication: GASTRITIS PROPHYLAXIS
     Route: 048
     Dates: start: 20061115, end: 20061213

REACTIONS (1)
  - PROSTATE CANCER [None]
